FAERS Safety Report 7430960-6 (Version None)
Quarter: 2011Q2

REPORT INFORMATION
  Report Type: 
  Country: None (occurrence: None)
  Receive Date: 20110421
  Receipt Date: 20110412
  Transmission Date: 20111010
  Serious: Yes (Hospitalization, Other)
  Sender: FDA-Public Use
  Company Number: PHHY2011US32665

PATIENT
  Age: 48 Year
  Sex: Female

DRUGS (3)
  1. AMITRIPTYLINE HCL [Suspect]
  2. DIPHENHYDRAMINE HCL [Suspect]
  3. LAXATIVES [Concomitant]

REACTIONS (14)
  - DELIRIUM [None]
  - CONSCIOUSNESS FLUCTUATING [None]
  - TOXICITY TO VARIOUS AGENTS [None]
  - DISORIENTATION [None]
  - OVERDOSE [None]
  - ANTICHOLINERGIC SYNDROME [None]
  - PSYCHOMOTOR HYPERACTIVITY [None]
  - SPEECH DISORDER [None]
  - COGNITIVE DISORDER [None]
  - HEART RATE INCREASED [None]
  - SLUGGISHNESS [None]
  - DRY SKIN [None]
  - PYREXIA [None]
  - MYDRIASIS [None]
